FAERS Safety Report 8118884-2 (Version None)
Quarter: 2012Q1

REPORT INFORMATION
  Report Type: 
  Country: None (occurrence: None)
  Receive Date: 20120207
  Receipt Date: 20120206
  Transmission Date: 20120608
  Serious: Yes (Hospitalization)
  Sender: FDA-Public Use
  Company Number: US-BAYER-2012-011814

PATIENT
  Age: 50 Year
  Sex: Female
  Weight: 116.9 kg

DRUGS (8)
  1. ASPIRIN [Suspect]
     Dosage: DAILY DOSE 81 MG
  2. SUNITINIB MALATE [Suspect]
     Indication: MALIGNANT MELANOMA
     Dosage: 37.5 MG, QD
     Route: 048
     Dates: start: 20111222, end: 20111224
  3. BEVACIZUMAB [Suspect]
     Dosage: DAILY DOSE 5 MG/KG
     Route: 042
     Dates: start: 20111222
  4. HYDROCODONE BITARTRATE AND ACETAMINOPHEN [Concomitant]
  5. NITROSTAT [Concomitant]
  6. ZOCOR [Concomitant]
  7. RANOLAZINE [Concomitant]
  8. ALBUTEROL SULFATE [Concomitant]

REACTIONS (1)
  - MENORRHAGIA [None]
